FAERS Safety Report 21605823 (Version 1)
Quarter: 2022Q4

REPORT INFORMATION
  Report Type: Spontaneous
  Country: US (occurrence: US)
  Receive Date: 20221116
  Receipt Date: 20221116
  Transmission Date: 20230113
  Serious: Yes (Other)
  Sender: FDA-Public Use
  Company Number: US-SUN PHARMACEUTICAL INDUSTRIES LTD-2022R1-363658

PATIENT
  Age: 57 Year
  Sex: Male

DRUGS (2)
  1. BENAZEPRIL [Suspect]
     Active Substance: BENAZEPRIL HYDROCHLORIDE
     Indication: Product used for unknown indication
     Dosage: 20 MILLIGRAM, 20 TABLETS
     Route: 048
  2. AMLODIPINE [Suspect]
     Active Substance: AMLODIPINE BESYLATE
     Indication: Product used for unknown indication
     Dosage: 10 MILLIGRAM, 20 TABLETS
     Route: 048

REACTIONS (8)
  - Shock [Unknown]
  - Overdose [Unknown]
  - Suicide attempt [Unknown]
  - Hypotension [Unknown]
  - Lactic acidosis [Unknown]
  - Electrolyte imbalance [Unknown]
  - Renal impairment [Unknown]
  - Cardiac arrest [Unknown]
